FAERS Safety Report 8138518-0 (Version None)
Quarter: 2012Q1

REPORT INFORMATION
  Report Type: 
  Country: None (occurrence: None)
  Receive Date: 20120215
  Receipt Date: 20120213
  Transmission Date: 20120608
  Serious: No
  Sender: FDA-Public Use
  Company Number: US-TEVA-322451USA

PATIENT
  Sex: Female

DRUGS (1)
  1. COPAXONE [Suspect]
     Indication: MULTIPLE SCLEROSIS
     Dosage: 20 MILLIGRAM;
     Route: 058
     Dates: start: 20111007, end: 20120201

REACTIONS (4)
  - FEELING HOT [None]
  - PALPITATIONS [None]
  - IMMEDIATE POST-INJECTION REACTION [None]
  - CHILLS [None]
